FAERS Safety Report 8310499-6 (Version None)
Quarter: 2012Q2

REPORT INFORMATION
  Report Type: 
  Country: None (occurrence: None)
  Receive Date: 20120425
  Receipt Date: 20120416
  Transmission Date: 20120825
  Serious: Yes (Congenital Anomaly, Other)
  Sender: FDA-Public Use
  Company Number: US-B.I. PHARMACEUTICALS,INC./RIDGEFIELD-2012-BP-07112BP

PATIENT
  Sex: Male
  Weight: 2.02 kg

DRUGS (5)
  1. ZERIT [Concomitant]
     Indication: MATERNAL EXPOSURE DURING PREGNANCY
     Route: 064
  2. RETROVIR [Concomitant]
     Indication: MATERNAL EXPOSURE DURING PREGNANCY
     Route: 064
  3. COMBIVIR [Concomitant]
     Indication: MATERNAL EXPOSURE DURING PREGNANCY
     Route: 064
  4. VIRAMUNE [Suspect]
     Indication: MATERNAL EXPOSURE DURING PREGNANCY
     Route: 064
  5. EPIVIR [Concomitant]
     Indication: MATERNAL EXPOSURE DURING PREGNANCY
     Route: 064

REACTIONS (6)
  - PREMATURE BABY [None]
  - VENTRICULAR SEPTAL DEFECT [None]
  - LOW BIRTH WEIGHT BABY [None]
  - ULTRASOUND ANTENATAL SCREEN [None]
  - TRISOMY 21 [None]
  - CONGENITAL BOWING OF LONG BONES [None]
